FAERS Safety Report 4754640-0 (Version None)
Quarter: 2005Q3

REPORT INFORMATION
  Report Type: 
  Country: None (occurrence: None)
  Receive Date: 20050829
  Receipt Date: 20050825
  Transmission Date: 20060218
  Serious: Yes (Hospitalization)
  Sender: FDA-Public Use
  Company Number: DE-GLAXOSMITHKLINE-D0047375A

PATIENT
  Age: 74 Year
  Sex: Male

DRUGS (1)
  1. ZOVIRAX [Suspect]
     Route: 048

REACTIONS (3)
  - CONFUSIONAL STATE [None]
  - EPILEPSY [None]
  - MEMORY IMPAIRMENT [None]
